FAERS Safety Report 7729932-3 (Version None)
Quarter: 2011Q3

REPORT INFORMATION
  Report Type: 
  Country: None (occurrence: None)
  Receive Date: 20110901
  Receipt Date: 20110901
  Transmission Date: 20111222
  Serious: Yes (Hospitalization)
  Sender: FDA-Public Use
  Company Number: None

PATIENT
  Age: 66 Year
  Sex: Female
  Weight: 50.8029 kg

DRUGS (3)
  1. BENLYSTA [Suspect]
     Indication: SYSTEMIC LUPUS ERYTHEMATOSUS
     Dosage: 520MG 9 MONTHS IV
     Route: 042
     Dates: start: 20110721
  2. BENLYSTA [Suspect]
     Indication: SYSTEMIC LUPUS ERYTHEMATOSUS
     Dosage: 520MG 9 MONTHS IV
     Route: 042
     Dates: start: 20110708
  3. BENLYSTA [Suspect]

REACTIONS (3)
  - PYELONEPHRITIS [None]
  - BACTERAEMIA [None]
  - ESCHERICHIA INFECTION [None]
